FAERS Safety Report 8917517 (Version 5)
Quarter: 2013Q2

REPORT INFORMATION
  Report Type: Report from Study
  Country: US (occurrence: US)
  Receive Date: 20121120
  Receipt Date: 20130418
  Transmission Date: 20140414
  Serious: No
  Sender: FDA-Public Use
  Company Number: US-VERTEX PHARMACEUTICAL INC.-2012-024687

PATIENT
  Age: 62 Year
  Sex: Female
  Weight: 64 kg

DRUGS (3)
  1. VX-950 (TELAPREVIR) [Suspect]
     Indication: HEPATITIS C
     Dosage: 750 MG, TID
     Route: 048
     Dates: start: 2012, end: 201302
  2. PEGASYS [Suspect]
     Indication: HEPATITIS C
     Dosage: 180 ?G, QW
     Route: 058
     Dates: start: 2012
  3. RIBASPHERE [Suspect]
     Indication: HEPATITIS C
     Dosage: 600 MG, BID
     Route: 048
     Dates: start: 2012

REACTIONS (12)
  - White blood cell count decreased [Unknown]
  - Ocular hyperaemia [Unknown]
  - Cough [Unknown]
  - Abdominal pain upper [Unknown]
  - Pain [Unknown]
  - Dyspepsia [Unknown]
  - Asthenia [Unknown]
  - Fatigue [Unknown]
  - Red blood cell count decreased [Unknown]
  - Vomiting [Unknown]
  - Nausea [Unknown]
  - Pruritus [Unknown]
